FAERS Safety Report 9543934 (Version 1)
Quarter: 2013Q3

REPORT INFORMATION
  Report Type: Spontaneous
  Country: US (occurrence: US)
  Receive Date: 20130923
  Receipt Date: 20130923
  Transmission Date: 20140515
  Serious: Yes (Other)
  Sender: FDA-Public Use
  Company Number: US-BAYER-2013-114589

PATIENT
  Age: 32 Year
  Sex: Female

DRUGS (8)
  1. YAZ [Suspect]
  2. DOXYCYCLINE HYCLATE [DOXYCYCLINE HYCLATE] [Concomitant]
     Dosage: 100 MG, UNK
     Dates: start: 20080522
  3. METOPROLOL [Concomitant]
     Dosage: 25 MG, UNK
     Dates: start: 20080627, end: 20080719
  4. LEXAPRO [Concomitant]
     Dosage: 20 MG, UNK
     Dates: start: 20090918, end: 20091120
  5. NEXIUM [Concomitant]
     Dosage: 40 MG, UNK
     Dates: start: 20090918
  6. TRAZODONE [Concomitant]
     Dosage: 100 MG, UNK
     Dates: start: 20091023
  7. FERROUS SULFATE [Concomitant]
     Dosage: 325 MG, UNK
     Dates: start: 20080917, end: 20091120
  8. VICODIN [Concomitant]

REACTIONS (2)
  - Thrombophlebitis superficial [None]
  - Cholelithiasis [None]
